FAERS Safety Report 6154967-4 (Version None)
Quarter: 2009Q2

REPORT INFORMATION
  Report Type: 
  Country: None (occurrence: None)
  Receive Date: 20090410
  Receipt Date: 20090331
  Transmission Date: 20091009
  Serious: Yes (Other)
  Sender: FDA-Public Use
  Company Number: GXKR2009AR04078

PATIENT
  Age: 67 Year
  Sex: Male

DRUGS (5)
  1. VALPROIC ACID [Suspect]
     Indication: HUNTINGTON'S CHOREA
     Dosage: 500 MG, BID
  2. OLANZAPINE [Concomitant]
  3. CLONAZEPAM [Concomitant]
  4. PAROXETINE HCL [Concomitant]
  5. RIVASTIGMINE TARTRATE [Concomitant]

REACTIONS (10)
  - BRADYKINESIA [None]
  - DYSTONIA [None]
  - FACE INJURY [None]
  - FALL [None]
  - MUSCLE RIGIDITY [None]
  - PARKINSONIAN GAIT [None]
  - PARKINSONIAN REST TREMOR [None]
  - PARKINSONISM [None]
  - PLEUROTHOTONUS [None]
  - POSTURE ABNORMAL [None]
